FAERS Safety Report 7832385-8 (Version None)
Quarter: 2011Q4

REPORT INFORMATION
  Report Type: 
  Country: None (occurrence: None)
  Receive Date: 20111022
  Receipt Date: 20111011
  Transmission Date: 20120403
  Serious: Yes (Life-Threatening, Hospitalization)
  Sender: FDA-Public Use
  Company Number: US-BAYER-2011-004033

PATIENT
  Age: 21 Year
  Sex: Female

DRUGS (2)
  1. YASMIN [Suspect]
     Indication: ACNE
  2. YASMIN [Suspect]
     Indication: CONTRACEPTION
     Dosage: UNK
     Dates: start: 20050901, end: 20071101

REACTIONS (3)
  - ANXIETY [None]
  - PAIN [None]
  - PULMONARY EMBOLISM [None]
